FAERS Safety Report 4481310-9 (Version None)
Quarter: 2004Q3

REPORT INFORMATION
  Report Type: 
  Country: None (occurrence: None)
  Receive Date: 20040923
  Receipt Date: 20040811
  Transmission Date: 20050211
  Serious: No
  Sender: FDA-Public Use
  Company Number: USA030947687

PATIENT
  Age: 74 Year
  Sex: Female

DRUGS (3)
  1. FORTEO [Suspect]
     Indication: OSTEOPOROSIS
     Dosage: 20 UG/DAY
     Dates: start: 20030909
  2. ACIPHEX [Concomitant]
  3. CALCIUM GLUCONATE [Concomitant]

REACTIONS (12)
  - ABDOMINAL PAIN UPPER [None]
  - ARTHRALGIA [None]
  - DRY SKIN [None]
  - HEADACHE [None]
  - HEARING IMPAIRED [None]
  - INJECTION SITE BURNING [None]
  - INJECTION SITE HAEMORRHAGE [None]
  - INJECTION SITE PAIN [None]
  - PAIN [None]
  - PAIN IN EXTREMITY [None]
  - SKIN LACERATION [None]
  - SKIN WRINKLING [None]
